FAERS Safety Report 18082542 (Version 2)
Quarter: 2020Q3

REPORT INFORMATION
  Report Type: Spontaneous
  Country: NL (occurrence: NL)
  Receive Date: 20200728
  Receipt Date: 20200728
  Transmission Date: 20201103
  Serious: Yes (Other)
  Sender: FDA-Public Use
  Company Number: NL-ROCHE-2643799

PATIENT
  Sex: Female

DRUGS (1)
  1. OCREVUS [Suspect]
     Active Substance: OCRELIZUMAB
     Indication: PRODUCT USED FOR UNKNOWN INDICATION
     Route: 042

REACTIONS (9)
  - White blood cell count decreased [Unknown]
  - Menstruation irregular [Unknown]
  - Pruritus [Unknown]
  - Ear infection [Unknown]
  - Cystitis [Unknown]
  - Inflammation [Unknown]
  - Nail disorder [Unknown]
  - Influenza [Unknown]
  - Dry eye [Unknown]
